FAERS Safety Report 5859192-X (Version None)
Quarter: 2008Q3

REPORT INFORMATION
  Report Type: 
  Country: None (occurrence: None)
  Receive Date: 20080825
  Receipt Date: 20080819
  Transmission Date: 20090109
  Serious: Yes (Life-Threatening, Hospitalization, Other)
  Sender: FDA-Public Use
  Company Number: 2008SP015381

PATIENT
  Age: 66 Year
  Sex: Female

DRUGS (4)
  1. TEMODAL [Suspect]
     Indication: GLIOBLASTOMA
     Dosage: 140 MG QD PO
     Route: 048
     Dates: start: 20080510, end: 20080602
  2. SEPTRA DS [Suspect]
     Indication: DRUG USE FOR UNKNOWN INDICATION
     Dosage: BID
     Dates: start: 20080510, end: 20080602
  3. THYROXINE [Concomitant]
  4. OMEPRAZOLE [Concomitant]

REACTIONS (10)
  - BONE MARROW FAILURE [None]
  - BONE MARROW TRANSPLANT [None]
  - DISEASE PROGRESSION [None]
  - FUNGAL SEPSIS [None]
  - LIVER ABSCESS [None]
  - LUNG ABSCESS [None]
  - LYMPHOMA [None]
  - NEUTROPENIA [None]
  - PELVIC ABSCESS [None]
  - PSEUDOMONAS INFECTION [None]
